FAERS Safety Report 21579523 (Version 1)
Quarter: 2022Q4

REPORT INFORMATION
  Report Type: Spontaneous
  Country: US (occurrence: US)
  Receive Date: 20221110
  Receipt Date: 20221110
  Transmission Date: 20230113
  Serious: Yes (Other)
  Sender: FDA-Public Use
  Company Number: US-J.R. WATKINS, LLC-2022JRW00062

PATIENT
  Sex: Male

DRUGS (1)
  1. PHENOL [Suspect]
     Active Substance: PHENOL
     Dosage: UNK

REACTIONS (1)
  - Application site burn [Unknown]
